FAERS Safety Report 7644868-4 (Version None)
Quarter: 2011Q3

REPORT INFORMATION
  Report Type: 
  Country: None (occurrence: None)
  Receive Date: 20110725
  Receipt Date: 20110712
  Transmission Date: 20111222
  Serious: Yes (Hospitalization, Other)
  Sender: FDA-Public Use
  Company Number: 2011P1007725

PATIENT
  Age: 77 Year
  Sex: Male
  Weight: 63.5036 kg

DRUGS (5)
  1. OMEPRAZOLE [Concomitant]
  2. TAMSULOSIN HCL [Concomitant]
  3. FENTANYL [Suspect]
     Indication: BACK PAIN
     Dosage: 1 PATCH;Q48H, TDER
     Route: 062
     Dates: start: 20110101
  4. FENTANYL [Suspect]
     Indication: PAIN
     Dosage: 1 PATCH;Q48H, TDER
     Route: 062
     Dates: start: 20110101
  5. TYLENOL-500 [Concomitant]

REACTIONS (15)
  - RASH PRURITIC [None]
  - WEIGHT DECREASED [None]
  - THROAT IRRITATION [None]
  - INAPPROPRIATE SCHEDULE OF DRUG ADMINISTRATION [None]
  - HOT FLUSH [None]
  - DRUG INEFFECTIVE [None]
  - HYPOPHAGIA [None]
  - INSOMNIA [None]
  - TREMOR [None]
  - BIOPSY PROSTATE [None]
  - GASTRIC ULCER HAEMORRHAGE [None]
  - CHOLELITHIASIS [None]
  - DRY MOUTH [None]
  - RASH ERYTHEMATOUS [None]
  - BLOOD PH INCREASED [None]
